FAERS Safety Report 7411275-9 (Version None)
Quarter: 2011Q2

REPORT INFORMATION
  Report Type: 
  Country: None (occurrence: None)
  Receive Date: 20110413
  Receipt Date: 20100601
  Transmission Date: 20111010
  Serious: No
  Sender: FDA-Public Use
  Company Number: US-BRISTOL-MYERS SQUIBB COMPANY-15102999

PATIENT
  Age: 48 Year
  Sex: Male

DRUGS (2)
  1. ERBITUX [Suspect]
     Indication: HEAD AND NECK CANCER
     Dosage: IV DRIP OVER 1 HOUR
     Route: 041
     Dates: start: 20100311, end: 20100427
  2. RADIATION THERAPY [Concomitant]

REACTIONS (1)
  - SKIN EXFOLIATION [None]
